FAERS Safety Report 23424370 (Version 1)
Quarter: 2024Q1

REPORT INFORMATION
  Report Type: Spontaneous
  Country: US (occurrence: US)
  Receive Date: 20240120
  Receipt Date: 20240120
  Transmission Date: 20240409
  Serious: No
  Sender: FDA-Public Use
  Company Number: US-SA-SAC20240112000958

PATIENT

DRUGS (2)
  1. TUBERSOL [Suspect]
     Active Substance: TUBERCULIN PURIFIED PROTEIN DERIVATIVE
     Indication: Immunisation
     Dosage: UNK
     Route: 065
  2. IPOL [Suspect]
     Active Substance: POLIOVIRUS TYPE 1 ANTIGEN (FORMALDEHYDE INACTIVATED)\POLIOVIRUS TYPE 2 ANTIGEN (FORMALDEHYDE INACTIV
     Indication: Immunisation
     Route: 065
     Dates: start: 20240111

REACTIONS (1)
  - Wrong product administered [Unknown]

NARRATIVE: CASE EVENT DATE: 20240111
